FAERS Safety Report 17510129 (Version 4)
Quarter: 2020Q2

REPORT INFORMATION
  Report Type: Spontaneous
  Country: US (occurrence: US)
  Receive Date: 20200306
  Receipt Date: 20200603
  Transmission Date: 20200713
  Serious: No
  Sender: FDA-Public Use
  Company Number: US-PFIZER INC-2020100195

PATIENT
  Age: 52 Year
  Sex: Female

DRUGS (1)
  1. METHOTREXATE SODIUM. [Suspect]
     Active Substance: METHOTREXATE SODIUM
     Indication: RHEUMATOID ARTHRITIS
     Dosage: UNK
     Dates: start: 20170621, end: 201710

REACTIONS (7)
  - Drug hypersensitivity [Unknown]
  - Cough [Recovered/Resolved]
  - Stomatitis [Recovered/Resolved]
  - Oral mucosal blistering [Unknown]
  - Liver function test increased [Recovered/Resolved]
  - Drug ineffective [Unknown]
  - Mouth ulceration [Recovered/Resolved]

NARRATIVE: CASE EVENT DATE: 201710
